FAERS Safety Report 19840109 (Version 1)
Quarter: 2021Q3

REPORT INFORMATION
  Report Type: Spontaneous
  Country: US (occurrence: US)
  Receive Date: 20210916
  Receipt Date: 20210916
  Transmission Date: 20211014
  Serious: No
  Sender: FDA-Public Use
  Company Number: US-ALLERGAN-2113005US

PATIENT
  Age: 64 Year
  Sex: Female

DRUGS (1)
  1. VANIQA [Suspect]
     Active Substance: EFLORNITHINE HYDROCHLORIDE
     Indication: HYPERTRICHOSIS
     Dosage: IN THE MORNING AND AT NIGHT, A LITTLE BIT
     Dates: start: 2001

REACTIONS (1)
  - Headache [Recovered/Resolved]
